FAERS Safety Report 5302498-3 (Version None)
Quarter: 2007Q2

REPORT INFORMATION
  Report Type: 
  Country: None (occurrence: None)
  Receive Date: 20070419
  Receipt Date: 20070410
  Transmission Date: 20071010
  Serious: Yes (Death)
  Sender: FDA-Public Use
  Company Number: JP-ELI_LILLY_AND_COMPANY-JP200704002498

PATIENT
  Sex: Female

DRUGS (2)
  1. HUMACART REGULAR [Suspect]
     Indication: DIABETES MELLITUS
  2. HUMACART NPH [Suspect]
     Indication: DIABETES MELLITUS

REACTIONS (1)
  - DEATH [None]
